FAERS Safety Report 9375061 (Version 2)
Quarter: 2013Q3

REPORT INFORMATION
  Report Type: Spontaneous
  Country: US (occurrence: US)
  Receive Date: 20130628
  Receipt Date: 20130910
  Transmission Date: 20140515
  Serious: Yes (Hospitalization, Other)
  Sender: FDA-Public Use
  Company Number: US-PAR PHARMACEUTICAL, INC-2013SCPR006003

PATIENT
  Sex: 0

DRUGS (3)
  1. METOCLOPRAMIDE [Suspect]
     Indication: NAUSEA
     Dosage: 10 MG, TID
     Route: 048
  2. METOCLOPRAMIDE [Suspect]
     Indication: GASTROOESOPHAGEAL REFLUX DISEASE
  3. COMPAZINE /00013302/ [Suspect]
     Indication: NAUSEA
     Dosage: UNK, UNKNOWN
     Route: 065

REACTIONS (10)
  - Renal failure acute [Unknown]
  - Electrocardiogram QT prolonged [Unknown]
  - Pneumonia [Unknown]
  - Dysarthria [Unknown]
  - Encephalopathy [Unknown]
  - Myoclonus [Unknown]
  - Amnesia [Unknown]
  - Balance disorder [Unknown]
  - Tremor [Unknown]
  - Dystonia [Unknown]
